FAERS Safety Report 9034310 (Version 1)
Quarter: 2013Q1

REPORT INFORMATION
  Report Type: Spontaneous
  Country: US (occurrence: None)
  Receive Date: 20130114
  Receipt Date: 20130114
  Transmission Date: 20140127
  Serious: Yes (Other)
  Sender: FDA-Public Use
  Company Number: US-JNJFOC-20130101555

PATIENT
  Age: 36 Month
  Sex: Male

DRUGS (2)
  1. DECITABINE (DECITABINE) LYOPHILIZED POWDER [Suspect]
     Indication: NEUROBLASTOMA
     Dosage: IN 1 MONTH
     Route: 042
  2. VACCINES [Suspect]
     Dosage: 2 WEEKLY CYCLES

REACTIONS (6)
  - Hepatotoxicity [None]
  - Blood alkaline phosphatase increased [None]
  - Neutrophil count decreased [None]
  - Leukopenia [None]
  - C-telopeptide increased [None]
  - Platelet count decreased [None]
